FAERS Safety Report 5718084-7 (Version None)
Quarter: 2008Q2

REPORT INFORMATION
  Report Type: 
  Country: None (occurrence: None)
  Receive Date: 20080425
  Receipt Date: 20080416
  Transmission Date: 20081010
  Serious: Yes (Hospitalization)
  Sender: FDA-Public Use
  Company Number: US-MERCK-0804USA03759

PATIENT
  Age: 55 Year
  Sex: Female

DRUGS (2)
  1. FOSAMAX [Suspect]
     Indication: OSTEOPOROSIS
     Route: 048
  2. PRILOSEC [Concomitant]
     Route: 065

REACTIONS (5)
  - HAEMATEMESIS [None]
  - ODYNOPHAGIA [None]
  - ORAL DISORDER [None]
  - ORAL MUCOSA EROSION [None]
  - PEMPHIGUS [None]
